FAERS Safety Report 8859448 (Version 1)
Quarter: 2012Q4

REPORT INFORMATION
  Report Type: 
  Country: JP (occurrence: JP)
  Receive Date: 20121024
  Receipt Date: 20121024
  Transmission Date: 20130627
  Serious: Yes (Disabling)
  Sender: FDA-Public Use
  Company Number: JP-ROCHE-1139929

PATIENT
  Age: 39 Year
  Sex: Male
  Weight: 55 kg

DRUGS (16)
  1. PEGASYS [Suspect]
     Indication: HEPATITIS C
     Route: 058
     Dates: start: 20111017, end: 20111024
  2. PEGASYS [Suspect]
     Indication: HEPATITIS C
     Route: 058
     Dates: start: 20111031, end: 20111107
  3. PEGASYS [Suspect]
     Indication: HEPATITIS C
     Route: 058
     Dates: start: 20111114, end: 20111212
  4. PEGASYS [Suspect]
     Indication: HEPATITIS C
     Route: 058
     Dates: start: 20120104, end: 20120305
  5. PEGASYS [Suspect]
     Indication: HEPATITIS C
     Route: 058
     Dates: start: 20120312, end: 20120312
  6. COPEGUS [Suspect]
     Indication: HEPATITIS C
     Dosage: Dosage is uncertain.
     Route: 048
     Dates: start: 20111017, end: 20111024
  7. COPEGUS [Suspect]
     Indication: HEPATITIS C
     Dosage: Dosage is uncertain.
     Route: 048
     Dates: start: 20111031, end: 20120319
  8. INTERFERON BETA [Concomitant]
     Indication: PROPHYLAXIS
     Route: 065
     Dates: start: 20111221, end: 20120102
  9. LOXONIN [Concomitant]
     Indication: PROPHYLAXIS
     Route: 048
     Dates: start: 20111017
  10. TAKEPRON [Concomitant]
     Indication: PROPHYLAXIS
     Route: 048
     Dates: start: 20111017, end: 20120402
  11. MYSLEE [Concomitant]
     Indication: PROPHYLAXIS
     Route: 048
     Dates: start: 20111031, end: 20111225
  12. DEPAS [Concomitant]
     Indication: PROPHYLAXIS
     Route: 048
     Dates: start: 20111128, end: 20120214
  13. RESLIN [Concomitant]
     Indication: PROPHYLAXIS
     Route: 048
     Dates: start: 20111213
  14. LENDORMIN D [Concomitant]
     Indication: PROPHYLAXIS
     Route: 048
     Dates: start: 20111213
  15. PL [Concomitant]
     Indication: NASOPHARYNGITIS
     Route: 048
     Dates: start: 20111223, end: 20111226
  16. AMOBAN [Concomitant]
     Indication: PROPHYLAXIS
     Route: 048
     Dates: start: 20111226, end: 20120423

REACTIONS (5)
  - Hypoaesthesia [Not Recovered/Not Resolved]
  - Central pain syndrome [Not Recovered/Not Resolved]
  - Dysgeusia [Unknown]
  - Insomnia [Unknown]
  - Pain [Not Recovered/Not Resolved]
